FAERS Safety Report 10553576 (Version 1)
Quarter: 2014Q4

REPORT INFORMATION
  Report Type: Spontaneous
  Country: RU (occurrence: None)
  Receive Date: 20141028
  Receipt Date: 20141028
  Transmission Date: 20150529
  Serious: Yes (Hospitalization, Other)
  Sender: FDA-Public Use
  Company Number: B1025523A

PATIENT
  Sex: Female

DRUGS (4)
  1. LAMIVUDINE. [Suspect]
     Active Substance: LAMIVUDINE
     Indication: HIV INFECTION
     Dates: start: 201403
  2. REYATAZ [Suspect]
     Active Substance: ATAZANAVIR SULFATE
     Indication: HIV INFECTION
     Dates: start: 201403
  3. STAVUDINE (STAVUDINE) UNKNOWN [Suspect]
     Active Substance: STAVUDINE
     Indication: HIV INFECTION
     Dates: start: 201403
  4. UNKNOWN ANTI-TUBERCULOSIS DRUGS (DRUGS FOR TREATMENT OF TUBERCULOSIS) [Concomitant]

REACTIONS (4)
  - Seizure [None]
  - Chest pain [None]
  - Coma [None]
  - Alanine aminotransferase increased [None]

NARRATIVE: CASE EVENT DATE: 201403
